FAERS Safety Report 20990073 (Version 3)
Quarter: 2022Q3

REPORT INFORMATION
  Report Type: Spontaneous
  Country: IT (occurrence: IT)
  Receive Date: 20220621
  Receipt Date: 20220730
  Transmission Date: 20221027
  Serious: Yes (Hospitalization)
  Sender: FDA-Public Use
  Company Number: None

PATIENT
  Age: 2 Day
  Sex: Female
  Weight: 3 kg

DRUGS (5)
  1. EDURANT [Suspect]
     Active Substance: RILPIVIRINE HYDROCHLORIDE
     Indication: Acute HIV infection
     Route: 064
  2. PREZISTA [Suspect]
     Active Substance: DARUNAVIR ETHANOLATE
     Indication: Acute HIV infection
     Route: 064
  3. RITONAVIR [Suspect]
     Active Substance: RITONAVIR
     Indication: Acute HIV infection
     Route: 064
  4. RALTEGRAVIR [Suspect]
     Active Substance: RALTEGRAVIR
     Indication: Acute HIV infection
     Route: 064
  5. ZIDOVUDINE [Suspect]
     Active Substance: ZIDOVUDINE
     Indication: Prophylaxis against HIV infection
     Route: 064
     Dates: start: 20220420, end: 20220607

REACTIONS (4)
  - Adnexa uteri cyst [Recovering/Resolving]
  - Ventricular extrasystoles [Recovering/Resolving]
  - Heart rate irregular [Recovering/Resolving]
  - Foetal exposure during pregnancy [Recovered/Resolved]

NARRATIVE: CASE EVENT DATE: 20220422
